FAERS Safety Report 17111869 (Version 3)
Quarter: 2020Q2

REPORT INFORMATION
  Report Type: Spontaneous
  Country: US (occurrence: US)
  Receive Date: 20191204
  Receipt Date: 20200615
  Transmission Date: 20200713
  Serious: No
  Sender: FDA-Public Use
  Company Number: US-SA-2019SA335483

PATIENT

DRUGS (14)
  1. PROPRANOLOL HYDROCHLORIDE. [Concomitant]
     Active Substance: PROPRANOLOL HYDROCHLORIDE
  2. AUBAGIO [Suspect]
     Active Substance: TERIFLUNOMIDE
     Indication: PRODUCT USED FOR UNKNOWN INDICATION
     Dosage: 14 MG, QD
     Route: 048
     Dates: start: 20190925
  3. VYVANSE [Concomitant]
     Active Substance: LISDEXAMFETAMINE DIMESYLATE
  4. GABAPENTIN. [Concomitant]
     Active Substance: GABAPENTIN
  5. VITAMIN D3 [Concomitant]
     Active Substance: CHOLECALCIFEROL
  6. METOPROLOL SUCCINATE. [Concomitant]
     Active Substance: METOPROLOL SUCCINATE
  7. AUBAGIO [Suspect]
     Active Substance: TERIFLUNOMIDE
     Indication: ASTHMA
  8. VITAMINS NOS [Concomitant]
     Active Substance: VITAMINS
  9. LAMOTRIGINE. [Concomitant]
     Active Substance: LAMOTRIGINE
  10. MOBIC [Concomitant]
     Active Substance: MELOXICAM
  11. XYZAL [Concomitant]
     Active Substance: LEVOCETIRIZINE DIHYDROCHLORIDE
  12. HYDROXYZINE HCL [Concomitant]
     Active Substance: HYDROXYZINE HYDROCHLORIDE
  13. BIOTIN [Concomitant]
     Active Substance: BIOTIN
     Dosage: UNK UNK, QD
  14. OMEPRAZOLE. [Concomitant]
     Active Substance: OMEPRAZOLE

REACTIONS (6)
  - Product use in unapproved indication [Unknown]
  - Abdominal pain upper [Unknown]
  - Alopecia [Unknown]
  - Tremor [Unknown]
  - Condition aggravated [Unknown]
  - Headache [Unknown]

NARRATIVE: CASE EVENT DATE: 20191122
